FAERS Safety Report 21745358 (Version 1)
Quarter: 2022Q4

REPORT INFORMATION
  Report Type: Spontaneous
  Country: GB (occurrence: GB)
  Receive Date: 20221219
  Receipt Date: 20221219
  Transmission Date: 20230112
  Serious: Yes (Hospitalization)
  Sender: FDA-Public Use
  Company Number: None

PATIENT
  Age: 80 Year

DRUGS (6)
  1. OMEPRAZOLE [Interacting]
     Active Substance: OMEPRAZOLE
     Dosage: OMEOPRAZOLE DISP TABS 20MG MANE
  2. BISOPROLOL [Concomitant]
     Active Substance: BISOPROLOL
  3. CHOLECALCIFEROL [Concomitant]
     Active Substance: CHOLECALCIFEROL
  4. LEVOTHYROXINE [Concomitant]
     Active Substance: LEVOTHYROXINE
  5. SPIRONOLACTONE [Interacting]
     Active Substance: SPIRONOLACTONE
  6. FOLIC ACID [Concomitant]
     Active Substance: FOLIC ACID
     Dosage: 5MG TABS MANE FOR THREE MONTHS
     Dates: start: 20220909

REACTIONS (2)
  - Hyponatraemia [Recovered/Resolved]
  - Drug interaction [Recovered/Resolved]

NARRATIVE: CASE EVENT DATE: 20221118
